FAERS Safety Report 23240225 (Version 4)
Quarter: 2024Q1

REPORT INFORMATION
  Report Type: Report from Study
  Country: GB (occurrence: GB)
  Receive Date: 20231129
  Receipt Date: 20240131
  Transmission Date: 20240410
  Serious: Yes (Hospitalization, Other)
  Sender: FDA-Public Use
  Company Number: GB-002147023-NVSC2023GB250345

PATIENT
  Sex: Female

DRUGS (3)
  1. COSENTYX [Suspect]
     Active Substance: SECUKINUMAB
     Indication: Psoriatic arthropathy
     Dosage: 150 MG, QMO (2 PRE-FILLED DISPOSABLE INJECTION)
     Route: 058
     Dates: start: 20230926
  2. COSENTYX [Suspect]
     Active Substance: SECUKINUMAB
     Dosage: 150 MG, QMO
     Route: 058
     Dates: start: 20230928
  3. COSENTYX [Suspect]
     Active Substance: SECUKINUMAB
     Dosage: UNK(04 NOV)
     Route: 065

REACTIONS (9)
  - Feeling abnormal [Unknown]
  - Dehydration [Unknown]
  - Malaise [Unknown]
  - Arthritis [Unknown]
  - Pneumonia [Unknown]
  - COVID-19 [Unknown]
  - Influenza [Unknown]
  - Memory impairment [Unknown]
  - Product dose omission issue [Unknown]
